FAERS Safety Report 17192837 (Version 4)
Quarter: 2021Q3

REPORT INFORMATION
  Report Type: Report from Study
  Country: US (occurrence: US)
  Receive Date: 20191223
  Receipt Date: 20210809
  Transmission Date: 20211014
  Serious: No
  Sender: FDA-Public Use
  Company Number: US-SA-2019SA352377

PATIENT
  Age: 57 Year
  Sex: Female

DRUGS (4)
  1. DUPILUMAB [Suspect]
     Active Substance: DUPILUMAB
     Indication: ASTHMA
     Dosage: 600 MG, 1X
     Route: 058
     Dates: start: 20191001, end: 20191001
  2. DUPILUMAB [Suspect]
     Active Substance: DUPILUMAB
     Dosage: 300 MG, QOW
     Route: 058
     Dates: start: 2019, end: 202012
  3. PREDNISONE. [Suspect]
     Active Substance: PREDNISONE
     Indication: ASTHMA
     Dosage: UNK UNK, 1X
     Route: 055
     Dates: start: 202104
  4. PREDNISONE. [Suspect]
     Active Substance: PREDNISONE
     Dosage: 2 DF
     Route: 055
     Dates: start: 202104

REACTIONS (10)
  - Oesophageal disorder [Not Recovered/Not Resolved]
  - Chest discomfort [Not Recovered/Not Resolved]
  - Injection site swelling [Recovering/Resolving]
  - Device issue [Recovering/Resolving]
  - Abdominal discomfort [Not Recovered/Not Resolved]
  - Hernia repair [Not Recovered/Not Resolved]
  - Product use issue [Unknown]
  - Injection site pain [Recovering/Resolving]
  - Dyspnoea [Not Recovered/Not Resolved]
  - Injection site erythema [Recovering/Resolving]

NARRATIVE: CASE EVENT DATE: 20191001
